FAERS Safety Report 13227630 (Version 1)
Quarter: 2017Q1

REPORT INFORMATION
  Report Type: Spontaneous
  Country: TH (occurrence: TH)
  Receive Date: 20170213
  Receipt Date: 20170213
  Transmission Date: 20170428
  Serious: Yes (Other)
  Sender: FDA-Public Use
  Company Number: TH-MYLANLABS-2017M1007836

PATIENT

DRUGS (3)
  1. DONEPEZIL. [Suspect]
     Active Substance: DONEPEZIL
     Dosage: 23MG/DAY; DOSE REDUCED FOLLOWING ADR TO 10MG/DAY AND THEN DISCONTINUED
     Route: 065
  2. DONEPEZIL. [Suspect]
     Active Substance: DONEPEZIL
     Indication: DEMENTIA ALZHEIMER^S TYPE
     Dosage: 10MG/DAY TITRATED UP TO 15MG/DAY
     Route: 065
  3. DONEPEZIL. [Suspect]
     Active Substance: DONEPEZIL
     Dosage: 15MG/DAY TITRATED UP TO 23MG/DAY
     Route: 065

REACTIONS (1)
  - Parkinsonism [Recovering/Resolving]
